FAERS Safety Report 5700084-4 (Version None)
Quarter: 2008Q2

REPORT INFORMATION
  Report Type: 
  Country: None (occurrence: None)
  Receive Date: 20080410
  Receipt Date: 20080401
  Transmission Date: 20081010
  Serious: Yes (Hospitalization)
  Sender: FDA-Public Use
  Company Number: FR-JNJFOC-20080303609

PATIENT
  Age: 33 Year
  Sex: Male

DRUGS (1)
  1. CODEINE PHOSPHATE AND ACETAMINOPHEN [Suspect]
     Indication: NECK PAIN
     Dosage: 500 MG OF ACETAMINOPHEN AND 30 MG OF CODEINE
     Route: 065

REACTIONS (1)
  - PANCREATITIS ACUTE [None]
